FAERS Safety Report 8215683-8 (Version None)
Quarter: 2012Q1

REPORT INFORMATION
  Report Type: 
  Country: None (occurrence: None)
  Receive Date: 20120316
  Receipt Date: 20120314
  Transmission Date: 20120608
  Serious: Yes (Other)
  Sender: FDA-Public Use
  Company Number: GB-PFIZER INC-2012067118

PATIENT
  Age: 39 Year
  Sex: Female
  Weight: 72 kg

DRUGS (3)
  1. HUMAN INSULATARD [Concomitant]
  2. VARENICLINE TARTRATE [Suspect]
     Dosage: UNK
     Route: 048
     Dates: start: 20120201
  3. NOVORAPID [Concomitant]

REACTIONS (4)
  - SKELETAL INJURY [None]
  - HYPOGLYCAEMIA [None]
  - CONVULSION [None]
  - FALL [None]
